FAERS Safety Report 18154474 (Version 2)
Quarter: 2020Q3

REPORT INFORMATION
  Report Type: Spontaneous
  Country: DE (occurrence: DE)
  Receive Date: 20200817
  Receipt Date: 20200903
  Transmission Date: 20201103
  Serious: Yes (Hospitalization, Other)
  Sender: FDA-Public Use
  Company Number: DE-AUROBINDO-AUR-APL-2020-038956

PATIENT
  Age: 73 Year
  Sex: Female

DRUGS (21)
  1. RIVASTIGMINE. [Concomitant]
     Active Substance: RIVASTIGMINE
     Indication: PRODUCT USED FOR UNKNOWN INDICATION
     Dosage: 4.6 MILLIGRAM, ONCE A DAY
     Route: 065
  2. CLOZAPINE. [Suspect]
     Active Substance: CLOZAPINE
     Indication: HALLUCINATION, VISUAL
     Dosage: UNK
     Route: 065
  3. TOUJEO [Concomitant]
     Active Substance: INSULIN GLARGINE
     Indication: TYPE 2 DIABETES MELLITUS
     Dosage: UNK (ACCORDING TO BLOOD SUGAR)
     Route: 065
  4. QUETIAPINE. [Concomitant]
     Active Substance: QUETIAPINE
     Indication: AGITATION
     Dosage: UNK
     Route: 065
  5. APOMORPHINE [Suspect]
     Active Substance: APOMORPHINE
     Indication: PARKINSONISM
     Dosage: UNK (2.5 MG IN 1 H, 50MG/50ML
     Route: 058
     Dates: start: 20180411
  6. VITAMIN B12 [Concomitant]
     Active Substance: CYANOCOBALAMIN
     Indication: VITAMIN B12 DEFICIENCY
     Dosage: UNK
     Route: 065
  7. DULOXETINE. [Concomitant]
     Active Substance: DULOXETINE
     Indication: DEPRESSION
     Dosage: 60 MILLIGRAM, ONCE A DAY (QD)
     Route: 065
  8. TOUJEO [Concomitant]
     Active Substance: INSULIN GLARGINE
     Dosage: 12 INTERNATIONAL UNIT
     Route: 065
     Dates: start: 202007
  9. THYRONAJOD [Concomitant]
     Active Substance: LEVOTHYROXINE SODIUM\POTASSIUM IODIDE
     Indication: HYPOTHYROIDISM
     Dosage: 75 MICROGRAM, ONCE A DAY (QD)
     Route: 065
  10. PREGABALIN. [Concomitant]
     Active Substance: PREGABALIN
     Indication: DIABETIC NEUROPATHY
     Dosage: UNK
     Route: 065
  11. MACROGOL [Concomitant]
     Active Substance: POLYETHYLENE GLYCOLS
     Indication: CONSTIPATION
     Dosage: UNK, ONCE A DAY,  (1?0?0)
     Route: 065
  12. QUETIAPINE. [Concomitant]
     Active Substance: QUETIAPINE
     Indication: HALLUCINATION, VISUAL
     Dosage: 50 MILLIGRAM, ONCE A DAY (0?0?1)
     Route: 065
     Dates: end: 202007
  13. NALOXONE HYDROCHLORIDE;TILIDINE HYDROCHLORIDE [Concomitant]
     Active Substance: NALOXONE HYDROCHLORIDE\TILIDINE HYDROCHLORIDE
     Indication: PAIN
     Dosage: 100 MILLIGRAM, TWO TIMES A DAY, (1?0?1)
     Route: 065
     Dates: end: 202007
  14. LEVODOPA/CARBIDOPA [Concomitant]
     Active Substance: CARBIDOPA\LEVODOPA
     Indication: PARKINSON^S DISEASE
     Dosage: UNK (PROLONGED RELEASE 100/25
     Route: 065
  15. PROPIVERINE [Concomitant]
     Active Substance: PROPIVERINE
     Indication: URGE INCONTINENCE
     Dosage: 30 MILLIGRAM, ONCE A DAY (1?0?0)
     Route: 065
  16. SITAGLIPTIN [Concomitant]
     Active Substance: SITAGLIPTIN
     Indication: TYPE 2 DIABETES MELLITUS
     Dosage: 100 MILLIGRAM, ONCE A DAY ((1?0?0))
     Route: 065
  17. ROPINIROLE. [Concomitant]
     Active Substance: ROPINIROLE
     Indication: PARKINSON^S DISEASE
     Dosage: 4 MILLIGRAM, ONCE A DAY
     Route: 065
     Dates: end: 202007
  18. MIRABEGRON [Concomitant]
     Active Substance: MIRABEGRON
     Indication: URGE INCONTINENCE
     Dosage: UNK
     Route: 065
  19. METFORMIN [Concomitant]
     Active Substance: METFORMIN HYDROCHLORIDE
     Indication: TYPE 2 DIABETES MELLITUS
     Dosage: 1000 MILLIGRAM, TWO TIMES A DAY, (1?0?1)
     Route: 065
  20. PREGABALIN. [Concomitant]
     Active Substance: PREGABALIN
     Indication: PAIN
     Dosage: 25 MILLIGRAM, 3 TIMES A DAY, (1?1?1)
     Route: 065
  21. CLOZAPINE. [Suspect]
     Active Substance: CLOZAPINE
     Indication: AGITATION
     Dosage: 6.25 MILLIGRAM, TWO TIMES A DAY
     Route: 065

REACTIONS (12)
  - Hand fracture [Recovered/Resolved]
  - Fall [Unknown]
  - Condition aggravated [Unknown]
  - Hallucination, visual [Unknown]
  - Somnolence [Unknown]
  - Agitation [Unknown]
  - Irregular sleep wake rhythm disorder [Unknown]
  - Balance disorder [Unknown]
  - Vitamin B12 deficiency [Unknown]
  - Fatigue [Unknown]
  - Gait disturbance [Unknown]
  - Hypotonia [Unknown]

NARRATIVE: CASE EVENT DATE: 2020
